FAERS Safety Report 12436610 (Version 1)
Quarter: 2016Q2

REPORT INFORMATION
  Report Type: Other
  Country: US (occurrence: US)
  Receive Date: 20160606
  Receipt Date: 20160606
  Transmission Date: 20160815
  Serious: Yes (Other)
  Sender: FDA-Public Use
  Company Number: US-SHIRE-US201606150

PATIENT
  Age: 39 Year
  Sex: Female

DRUGS (2)
  1. RUCONEST [Concomitant]
     Active Substance: HUMAN C1-ESTERASE INHIBITOR
     Indication: HEREDITARY ANGIOEDEMA
     Dosage: UNK, UNKNOWN
     Route: 065
  2. FIRAZYR [Suspect]
     Active Substance: ICATIBANT ACETATE
     Indication: HEREDITARY ANGIOEDEMA
     Dosage: 30 MG, AS REQ^D
     Route: 058
     Dates: start: 201508

REACTIONS (4)
  - Delirium [Recovered/Resolved]
  - Vomiting [Recovered/Resolved]
  - Brain hypoxia [Recovered/Resolved]
  - Pharyngeal oedema [Not Recovered/Not Resolved]

NARRATIVE: CASE EVENT DATE: 20160517
